FAERS Safety Report 9578386 (Version 1)
Quarter: 2013Q4

REPORT INFORMATION
  Report Type: Spontaneous
  Country: US (occurrence: US)
  Receive Date: 20131001
  Receipt Date: 20131001
  Transmission Date: 20140711
  Serious: No
  Sender: FDA-Public Use
  Company Number: US-AMGEN-USASP2013012578

PATIENT
  Sex: Female
  Weight: 67.12 kg

DRUGS (13)
  1. ENBREL [Suspect]
     Indication: PSORIATIC ARTHROPATHY
     Dosage: 50 MG, QWK
     Route: 058
  2. NUCYNTA [Concomitant]
     Dosage: 50 MG, UNK
  3. SYNTHROID [Concomitant]
     Dosage: 100 MUG, UNK
  4. METHOTREXATE                       /00113802/ [Concomitant]
     Dosage: 2.5 MG, UNK
  5. TOPAMAX [Concomitant]
     Dosage: 100 MG, UNK
  6. FOLIC ACID [Concomitant]
     Dosage: UNK
  7. PRISTIQ [Concomitant]
     Dosage: 100 MG, UNK
  8. NECON                              /00013701/ [Concomitant]
     Dosage: 0.5/35, UNK
  9. MAXALT                             /01406501/ [Concomitant]
     Dosage: 5 MG, UNK
  10. DIAZEPAM [Concomitant]
     Dosage: 10 MG, UNK
  11. SOMA [Concomitant]
     Dosage: 250 MG, UNK
  12. TRAZODONE [Concomitant]
     Dosage: 50 MG, UNK
  13. VITAMIN B 12 [Concomitant]
     Dosage: 1000 MUG, UNK

REACTIONS (4)
  - Back pain [Unknown]
  - Musculoskeletal pain [Unknown]
  - Arthralgia [Unknown]
  - Fatigue [Unknown]
